FAERS Safety Report 20101921 (Version 14)
Quarter: 2023Q1

REPORT INFORMATION
  Report Type: Spontaneous
  Country: US (occurrence: US)
  Receive Date: 20211123
  Receipt Date: 20230321
  Transmission Date: 20230418
  Serious: Yes (Other)
  Sender: FDA-Public Use
  Company Number: US-GLAXOSMITHKLINE-US2021239101

PATIENT

DRUGS (7)
  1. ZEJULA [Suspect]
     Active Substance: NIRAPARIB
     Indication: Ovarian cancer
     Dosage: 200 MG, QD
     Route: 048
     Dates: start: 20211027
  2. ZEJULA [Suspect]
     Active Substance: NIRAPARIB
     Dosage: 300 MG, QD
     Route: 048
  3. ZEJULA [Suspect]
     Active Substance: NIRAPARIB
     Dosage: 200 MG, QD
  4. ZEJULA [Suspect]
     Active Substance: NIRAPARIB
     Dosage: 100 MG
  5. ZEJULA [Suspect]
     Active Substance: NIRAPARIB
     Dosage: 200 MG, QD
     Route: 048
     Dates: start: 202204
  6. ZEJULA [Suspect]
     Active Substance: NIRAPARIB
     Dosage: 100 MG, QD
     Route: 048
  7. LEXAPRO [Suspect]
     Active Substance: ESCITALOPRAM OXALATE
     Indication: Feeling jittery
     Dosage: UNK

REACTIONS (28)
  - Neuropathy peripheral [Recovering/Resolving]
  - COVID-19 [Unknown]
  - Dry mouth [Unknown]
  - Dyspepsia [Unknown]
  - Headache [Unknown]
  - Nervousness [Unknown]
  - Constipation [Unknown]
  - Decreased appetite [Unknown]
  - Fatigue [Unknown]
  - Taste disorder [Unknown]
  - Blood pressure increased [Unknown]
  - Feeling jittery [Recovering/Resolving]
  - Myalgia [Not Recovered/Not Resolved]
  - Poor quality sleep [Unknown]
  - Arthralgia [Not Recovered/Not Resolved]
  - Neuralgia [Unknown]
  - Back pain [Not Recovered/Not Resolved]
  - Feeling abnormal [Unknown]
  - Fall [Unknown]
  - Pain [Unknown]
  - Vessel puncture site haemorrhage [Recovered/Resolved]
  - Pain in extremity [Unknown]
  - Sciatic nerve neuropathy [Unknown]
  - Heart rate increased [Unknown]
  - Gait disturbance [Unknown]
  - Tumour marker increased [Unknown]
  - Arthritis [Unknown]
  - Product dose omission issue [Unknown]
